FAERS Safety Report 4683553-8 (Version None)
Quarter: 2005Q2

REPORT INFORMATION
  Report Type: 
  Country: None (occurrence: None)
  Receive Date: 20050606
  Receipt Date: 20050606
  Transmission Date: 20051028
  Serious: Yes (Hospitalization)
  Sender: FDA-Public Use
  Company Number: None

PATIENT
  Age: 51 Year
  Sex: Female
  Weight: 66.7 kg

DRUGS (9)
  1. MACROBID [Suspect]
     Indication: CYSTOSCOPY
     Dosage: 100MG Q DAY   PO
     Route: 048
     Dates: start: 20050518, end: 20050605
  2. MACROBID [Suspect]
     Indication: STENT PLACEMENT
     Dosage: 100MG Q DAY   PO
     Route: 048
     Dates: start: 20050518, end: 20050605
  3. UROGESIC BLUE [Suspect]
     Dosage: 1 PO TID    PO
     Route: 048
     Dates: start: 20050518, end: 20050528
  4. UNIRETIC [Concomitant]
  5. CATAPRES [Concomitant]
  6. LOPID [Concomitant]
  7. NAPROSYN [Concomitant]
  8. GLYBURIDE [Concomitant]
  9. LORTAB [Concomitant]

REACTIONS (6)
  - ABDOMINAL PAIN UPPER [None]
  - CONFUSIONAL STATE [None]
  - HEPATIC FAILURE [None]
  - JAUNDICE [None]
  - NAUSEA [None]
  - VOMITING [None]
